FAERS Safety Report 4749353-5 (Version None)
Quarter: 2005Q3

REPORT INFORMATION
  Report Type: 
  Country: None (occurrence: None)
  Receive Date: 20050819
  Receipt Date: 20050812
  Transmission Date: 20060218
  Serious: Yes (Hospitalization)
  Sender: FDA-Public Use
  Company Number: CH-MERCK-0508CHE00015

PATIENT
  Age: 69 Year
  Sex: Male
  Weight: 84 kg

DRUGS (6)
  1. SINGULAIR [Suspect]
     Indication: CHRONIC OBSTRUCTIVE PULMONARY DISEASE
     Route: 048
     Dates: start: 20050101, end: 20050401
  2. LEVOFLOXACIN [Suspect]
     Indication: UPPER RESPIRATORY TRACT INFECTION
     Route: 048
     Dates: start: 20050301, end: 20050401
  3. BUDESONIDE AND FORMOTEROL FUMARATE [Concomitant]
     Indication: CHRONIC OBSTRUCTIVE PULMONARY DISEASE
     Route: 055
  4. TORSEMIDE [Concomitant]
     Route: 048
     Dates: start: 20050401
  5. VERAPAMIL HYDROCHLORIDE [Concomitant]
     Route: 048
  6. PHENPROCOUMON [Concomitant]
     Route: 048

REACTIONS (2)
  - APLASIA PURE RED CELL [None]
  - THROMBOCYTOPENIA [None]
